FAERS Safety Report 14929302 (Version 1)
Quarter: 2018Q2

REPORT INFORMATION
  Report Type: Spontaneous
  Country: US (occurrence: US)
  Receive Date: 20180523
  Receipt Date: 20180523
  Transmission Date: 20180711
  Serious: Yes (Other)
  Sender: FDA-Public Use
  Company Number: US-DRREDDYS-USA/USA/17/0094305

PATIENT
  Age: 16 Year
  Sex: Male

DRUGS (2)
  1. ISOTRETINOIN NOT OTHERWISE SPECIFIED [Suspect]
     Active Substance: ISOTRETINOIN
     Indication: ACNE
     Route: 065
  2. ISOTRETINOIN NOT OTHERWISE SPECIFIED [Suspect]
     Active Substance: ISOTRETINOIN
     Route: 065

REACTIONS (2)
  - Transaminases increased [Recovering/Resolving]
  - Hepatotoxicity [Unknown]
